FAERS Safety Report 10700358 (Version 1)
Quarter: 2015Q1

REPORT INFORMATION
  Report Type: Spontaneous
  Country: GB (occurrence: CH)
  Receive Date: 20150109
  Receipt Date: 20150109
  Transmission Date: 20150721
  Serious: Yes (Hospitalization)
  Sender: FDA-Public Use
  Company Number: GB-CIPLA LTD.-2014CH03065

PATIENT

DRUGS (8)
  1. CALCIPARINE [Suspect]
     Active Substance: HEPARIN CALCIUM
     Dosage: 25000IU
     Dates: start: 20140123, end: 20140128
  2. SINTROM [Suspect]
     Active Substance: ACENOCOUMAROL
     Dosage: UNK
     Dates: end: 20140120
  3. CRESTOR [Suspect]
     Active Substance: ROSUVASTATIN CALCIUM
     Dosage: 5 MG, UNK
     Route: 065
  4. CLEXANE [Suspect]
     Active Substance: ENOXAPARIN SODIUM
     Dosage: 80 MG, BID
     Route: 058
     Dates: start: 20140128, end: 20140130
  5. ASPIRIN. [Suspect]
     Active Substance: ASPIRIN
  6. SERTRALINE [Suspect]
     Active Substance: SERTRALINE HYDROCHLORIDE
     Indication: PRODUCT USED FOR UNKNOWN INDICATION
     Dosage: 50 MG, QD
     Route: 065
     Dates: end: 20140123
  7. SINTROM [Suspect]
     Active Substance: ACENOCOUMAROL
     Dosage: UNK
     Route: 048
     Dates: start: 20140125, end: 20140130
  8. IRFEN [Suspect]
     Active Substance: IBUPROFEN
     Dosage: 1200 MG, QD
     Route: 048
     Dates: start: 20140123, end: 20140130

REACTIONS (4)
  - Haemorrhage [Recovered/Resolved]
  - Acute kidney injury [Recovered/Resolved]
  - Cerebrovascular accident [Recovered/Resolved]
  - Drug interaction [Recovered/Resolved]

NARRATIVE: CASE EVENT DATE: 2014
